FAERS Safety Report 7668854-3 (Version None)
Quarter: 2011Q3

REPORT INFORMATION
  Report Type: 
  Country: None (occurrence: None)
  Receive Date: 20110808
  Receipt Date: 20110805
  Transmission Date: 20111222
  Serious: Yes (Other)
  Sender: FDA-Public Use
  Company Number: US-PFIZER INC-2011180144

PATIENT
  Sex: Female
  Weight: 55.8 kg

DRUGS (6)
  1. AMLODIPINE/HYDROCHLOROTHIAZIDE/OLMESARTAN MEDOXOMIL [Concomitant]
     Indication: HYPERTENSION
     Dosage: UNK
  2. LYRICA [Suspect]
     Indication: MUSCULOSKELETAL PAIN
     Dosage: 75 MG, 1X/DAY
     Route: 048
     Dates: start: 20110517, end: 20110101
  3. METOPROLOL [Concomitant]
     Indication: HYPERTENSION
     Dosage: UNK
  4. LYRICA [Suspect]
     Dosage: 150 MG, 2X/DAY
     Dates: start: 20110101
  5. ACETYLSALICYLIC ACID [Concomitant]
     Dosage: UNK
  6. CALCIUM [Concomitant]
     Dosage: UNK

REACTIONS (3)
  - WEIGHT INCREASED [None]
  - URINARY INCONTINENCE [None]
  - OEDEMA PERIPHERAL [None]
